FAERS Safety Report 19034903 (Version 1)
Quarter: 2021Q1

REPORT INFORMATION
  Report Type: Spontaneous
  Country: ES (occurrence: ES)
  Receive Date: 20210320
  Receipt Date: 20210320
  Transmission Date: 20210420
  Serious: Yes (Other)
  Sender: FDA-Public Use
  Company Number: ES-ACCORD-220133

PATIENT
  Age: 89 Year
  Sex: Female
  Weight: 60 kg

DRUGS (7)
  1. TAMOXIFEN [Concomitant]
     Active Substance: TAMOXIFEN
     Indication: BREAST CANCER
     Dates: start: 2021
  2. PAROXETINE. [Concomitant]
     Active Substance: PAROXETINE
     Indication: DEPRESSION
     Dates: start: 2018
  3. ORFIDAL [Suspect]
     Active Substance: LORAZEPAM
     Indication: INSOMNIA
     Dates: start: 2018, end: 20210108
  4. PREDNISONE. [Concomitant]
     Active Substance: PREDNISONE
     Indication: POLYMYALGIA RHEUMATICA
  5. QUETIAPINE. [Suspect]
     Active Substance: QUETIAPINE
     Indication: INSOMNIA
     Route: 048
     Dates: start: 20210109, end: 20210112
  6. EUTIROX [Concomitant]
     Active Substance: LEVOTHYROXINE SODIUM
     Indication: HYPOTHYROIDISM
     Dates: start: 2006
  7. ENALAPRIL [Concomitant]
     Active Substance: ENALAPRIL
     Dates: start: 2006

REACTIONS (6)
  - Energy increased [Recovered/Resolved]
  - Restlessness [Recovered/Resolved]
  - Dry mouth [Recovered/Resolved]
  - Hallucinations, mixed [Recovered/Resolved]
  - Akathisia [Recovered/Resolved]
  - Off label use [Unknown]

NARRATIVE: CASE EVENT DATE: 20210112
